FAERS Safety Report 24901144 (Version 1)
Quarter: 2025Q1

REPORT INFORMATION
  Report Type: Spontaneous
  Country: FR (occurrence: FR)
  Receive Date: 20250129
  Receipt Date: 20250129
  Transmission Date: 20250409
  Serious: Yes (Other)
  Sender: ABBVIE
  Company Number: FR-CHEPLA-2025000902

PATIENT
  Age: 82 Year
  Sex: Female

DRUGS (13)
  1. CITALOPRAM HYDROBROMIDE [Suspect]
     Active Substance: CITALOPRAM HYDROBROMIDE
     Indication: Product used for unknown indication
     Route: 065
  2. PEGASYS [Concomitant]
     Active Substance: PEGINTERFERON ALFA-2A
     Indication: Product used for unknown indication
     Dosage: 90 MICRO G ONCE A WEEK
  3. CLOZAPINE [Suspect]
     Active Substance: CLOZAPINE
     Indication: Product used for unknown indication
     Route: 065
  4. ECONAZOLE [Suspect]
     Active Substance: ECONAZOLE
     Indication: Product used for unknown indication
     Route: 065
  5. ELIQUIS [Suspect]
     Active Substance: APIXABAN
     Indication: Product used for unknown indication
     Route: 065
  6. HYDROXYUREA [Suspect]
     Active Substance: HYDROXYUREA
     Indication: Product used for unknown indication
     Route: 065
     Dates: start: 200507
  7. HYDROXYUREA [Suspect]
     Active Substance: HYDROXYUREA
     Indication: Product used for unknown indication
     Dosage: TWO TABLETS PER DAY
     Route: 065
     Dates: start: 20220801
  8. FUROSEMIDE [Suspect]
     Active Substance: FUROSEMIDE
     Indication: Product used for unknown indication
     Route: 065
  9. FUROSEMIDE [Suspect]
     Active Substance: FUROSEMIDE
     Indication: Product used for unknown indication
     Route: 065
  10. AMOXICILLIN [Suspect]
     Active Substance: AMOXICILLIN
     Indication: Product used for unknown indication
     Route: 065
     Dates: start: 20220823, end: 20220830
  11. KARDEGIC [Suspect]
     Active Substance: ASPIRIN DL-LYSINE
     Indication: Product used for unknown indication
     Route: 065
  12. SINEMET [Suspect]
     Active Substance: CARBIDOPA\LEVODOPA
     Indication: Product used for unknown indication
     Route: 065
  13. ANAGRELIDE HYDROCHLORIDE [Suspect]
     Active Substance: ANAGRELIDE HYDROCHLORIDE
     Indication: Product used for unknown indication
     Route: 065

REACTIONS (8)
  - Parkinson^s disease [Unknown]
  - Angiodermatitis [Unknown]
  - Pyelonephritis [Unknown]
  - Hypertension [Unknown]
  - Dementia [Unknown]
  - COVID-19 [Unknown]
  - Renal failure [Unknown]
  - Skin ulcer [Unknown]

NARRATIVE: CASE EVENT DATE: 20220701
